FAERS Safety Report 8174383-3 (Version None)
Quarter: 2012Q1

REPORT INFORMATION
  Report Type: 
  Country: None (occurrence: None)
  Receive Date: 20120229
  Receipt Date: 20120225
  Transmission Date: 20120608
  Serious: Yes (Other)
  Sender: FDA-Public Use
  Company Number: US-BAYER-2011-075107

PATIENT
  Age: 30 Year
  Sex: Female
  Weight: 58.957 kg

DRUGS (3)
  1. YAZ [Suspect]
     Indication: CONTRACEPTION
     Dosage: UNK
     Dates: start: 20061201, end: 20070401
  2. YAZ [Suspect]
     Indication: PREMENSTRUAL SYNDROME
  3. NAPROXEN [Concomitant]
     Dosage: UNK
     Route: 048
     Dates: start: 20040101, end: 20090101

REACTIONS (5)
  - GALLBLADDER INJURY [None]
  - PAIN [None]
  - INJURY [None]
  - CHOLECYSTITIS CHRONIC [None]
  - GALLBLADDER CHOLESTEROLOSIS [None]
